FAERS Safety Report 7590742-1 (Version None)
Quarter: 2011Q3

REPORT INFORMATION
  Report Type: 
  Country: None (occurrence: None)
  Receive Date: 20110705
  Receipt Date: 20110621
  Transmission Date: 20111222
  Serious: Yes (Other)
  Sender: FDA-Public Use
  Company Number: PHHY2011US50527

PATIENT
  Sex: Female

DRUGS (3)
  1. RECLAST [Suspect]
     Indication: OSTEOPOROSIS POSTMENOPAUSAL
     Route: 042
  2. RECLAST [Suspect]
     Dosage: 5 MG/ YEAR
     Route: 042
     Dates: start: 20110614
  3. RECLAST [Suspect]
     Dosage: 5 MG/ YEAR
     Route: 042
     Dates: start: 20100501

REACTIONS (5)
  - GAIT DISTURBANCE [None]
  - MOVEMENT DISORDER [None]
  - TREMOR [None]
  - INFLUENZA LIKE ILLNESS [None]
  - FEELING ABNORMAL [None]
